FAERS Safety Report 9526397 (Version 1)
Quarter: 2013Q3

REPORT INFORMATION
  Report Type: Spontaneous
  Country: US (occurrence: US)
  Receive Date: 20130916
  Receipt Date: 20130916
  Transmission Date: 20140515
  Serious: Yes (Hospitalization)
  Sender: FDA-Public Use
  Company Number: US-BAYER-2013-109917

PATIENT
  Age: 30 Year
  Sex: Female

DRUGS (8)
  1. YASMIN [Suspect]
  2. VICODIN [Concomitant]
  3. NAPROSYN [Concomitant]
  4. PREDNISONE [Concomitant]
  5. PROVENTIL [Concomitant]
  6. FLAGYL [Concomitant]
  7. DOXYCYCLINE [Concomitant]
  8. ROBAXIN [Concomitant]

REACTIONS (2)
  - Thalamic infarction [None]
  - Transient ischaemic attack [None]
